FAERS Safety Report 4356994-6 (Version None)
Quarter: 2004Q2

REPORT INFORMATION
  Report Type: 
  Country: None (occurrence: None)
  Receive Date: 20040512
  Receipt Date: 20040506
  Transmission Date: 20050107
  Serious: Yes (Death)
  Sender: FDA-Public Use
  Company Number: US-BRISTOL-MYERS SQUIBB COMPANY-12581120

PATIENT
  Age: 56 Year
  Sex: Female

DRUGS (2)
  1. ERBITUX [Suspect]
     Indication: COLORECTAL CANCER METASTATIC
     Route: 042
     Dates: start: 20040423, end: 20040423
  2. IRINOTECAN [Concomitant]
     Dates: start: 20040423, end: 20040423

REACTIONS (1)
  - CARDIO-RESPIRATORY ARREST [None]
